FAERS Safety Report 23374801 (Version 5)
Quarter: 2024Q1

REPORT INFORMATION
  Report Type: Spontaneous
  Country: CA (occurrence: CA)
  Receive Date: 20240106
  Receipt Date: 20240209
  Transmission Date: 20240410
  Serious: Yes (Hospitalization, Other)
  Sender: FDA-Public Use
  Company Number: CA-CELLTRION INC.-2023CA025447

PATIENT

DRUGS (4)
  1. INFLECTRA [Suspect]
     Active Substance: INFLIXIMAB-DYYB
     Indication: Colitis ulcerative
     Dosage: 1100 MG, EVERY 6 WEEKS
     Route: 042
     Dates: start: 20220418, end: 20231016
  2. INFLECTRA [Suspect]
     Active Substance: INFLIXIMAB-DYYB
     Dosage: 10 MG/KG, EVERY 5 WEEKS
     Route: 042
     Dates: start: 20231129, end: 20231129
  3. INFLECTRA [Suspect]
     Active Substance: INFLIXIMAB-DYYB
     Dosage: 10 MG/KG, EVERY 5 WEEKS (4 WEEKS AND 2 DAYS)
     Route: 042
     Dates: start: 20231229
  4. INFLECTRA [Suspect]
     Active Substance: INFLIXIMAB-DYYB
     Dosage: 1100 MG, WEEK 0, WEEK 2 THEN EVERY 5 WEEKS [AFTER 9 WEEKS AND 1 DAY (WEEK 0 REINDUCTION)]
     Route: 042
     Dates: start: 20240201

REACTIONS (6)
  - Pneumococcal infection [Recovering/Resolving]
  - Pain in extremity [Recovering/Resolving]
  - Limb injury [Recovering/Resolving]
  - Wound secretion [Recovering/Resolving]
  - Wound [Recovered/Resolved]
  - Off label use [Unknown]

NARRATIVE: CASE EVENT DATE: 20230101
